FAERS Safety Report 9510180 (Version 2)
Quarter: 2013Q3

REPORT INFORMATION
  Report Type: Spontaneous
  Country: US (occurrence: US)
  Receive Date: 20130909
  Receipt Date: 20130909
  Transmission Date: 20140515
  Serious: No
  Sender: FDA-Public Use
  Company Number: US-BRISTOL-MYERS SQUIBB COMPANY-18719153

PATIENT
  Sex: 0

DRUGS (1)
  1. ABILIFY TABS [Suspect]

REACTIONS (2)
  - Tachyphylaxis [Unknown]
  - Drug ineffective [Unknown]
